FAERS Safety Report 5713051-1 (Version None)
Quarter: 2008Q2

REPORT INFORMATION
  Report Type: 
  Country: None (occurrence: None)
  Receive Date: 20080422
  Receipt Date: 20080402
  Transmission Date: 20081010
  Serious: Yes (Other)
  Sender: FDA-Public Use
  Company Number: US-GENENTECH-239782

PATIENT
  Sex: Female

DRUGS (6)
  1. XOLAIR [Suspect]
     Indication: ASTHMA
     Dosage: 150 MG, 1/MONTH
     Route: 058
     Dates: start: 20061010
  2. XOLAIR [Suspect]
     Indication: URTICARIA CHRONIC
  3. ORAL CONTRACEPTIVES NOS [Concomitant]
     Indication: ENDOMETRIOSIS
  4. PREDNISONE [Concomitant]
     Indication: PHARYNGEAL OEDEMA
     Dosage: UNK, QD
  5. PREDNISONE [Concomitant]
     Indication: URTICARIA
  6. IMMUNOTHERAPY (ANTIGEN UNKNOWN) [Concomitant]
     Indication: SEASONAL ALLERGY

REACTIONS (1)
  - BLOOD THYROID STIMULATING HORMONE INCREASED [None]
